FAERS Safety Report 5752897-0 (Version None)
Quarter: 2008Q2

REPORT INFORMATION
  Report Type: 
  Country: None (occurrence: None)
  Receive Date: 20080529
  Receipt Date: 20080522
  Transmission Date: 20081010
  Serious: Yes (Hospitalization)
  Sender: FDA-Public Use
  Company Number: US-BOEHRINGER INGELHEIM GMBH, GERMANY-2008-BP-08039BP

PATIENT
  Sex: Male

DRUGS (7)
  1. FLOMAX [Suspect]
     Indication: BENIGN PROSTATIC HYPERPLASIA
     Route: 048
     Dates: start: 20080401, end: 20080508
  2. ZOCOR [Concomitant]
  3. PRILOSEC [Concomitant]
  4. ACTOS [Concomitant]
  5. DIAZIDE [Concomitant]
  6. ASPIRIN [Concomitant]
  7. LISINOPRIL [Concomitant]

REACTIONS (3)
  - DIZZINESS [None]
  - HEART RATE DECREASED [None]
  - HYPOTENSION [None]
